FAERS Safety Report 19153512 (Version 1)
Quarter: 2021Q2

REPORT INFORMATION
  Report Type: Report from Study
  Country: US (occurrence: US)
  Receive Date: 20210419
  Receipt Date: 20210419
  Transmission Date: 20210717
  Serious: Yes (Death, Other)
  Sender: FDA-Public Use
  Company Number: US-JNJFOC-20210426200

PATIENT
  Age: 55 Year
  Sex: Female

DRUGS (8)
  1. SPRAVATO [Suspect]
     Active Substance: ESKETAMINE
     Dosage: 84 MG, 34 TOTAL DOSES
     Dates: start: 20200323, end: 20210111
  2. SPRAVATO [Suspect]
     Active Substance: ESKETAMINE
     Indication: DEPRESSION
     Dosage: 56 MG, 6 TOTAL DOSES
     Dates: start: 20200302, end: 20200319
  3. LYRICA [Concomitant]
     Active Substance: PREGABALIN
     Dosage: 200
  4. VITAMIN D2 [Concomitant]
     Active Substance: ERGOCALCIFEROL
  5. AMBIEN [Concomitant]
     Active Substance: ZOLPIDEM TARTRATE
  6. DEPAKOTE ER [Concomitant]
     Active Substance: DIVALPROEX SODIUM
  7. PROZAC [Concomitant]
     Active Substance: FLUOXETINE HYDROCHLORIDE
  8. VALIUM [Concomitant]
     Active Substance: DIAZEPAM

REACTIONS (4)
  - Suicidal ideation [Unknown]
  - Nightmare [Unknown]
  - Anxiety [Unknown]
  - Completed suicide [Fatal]

NARRATIVE: CASE EVENT DATE: 202101
